APPROVED DRUG PRODUCT: FLUCONAZOLE IN DEXTROSE 5% IN PLASTIC CONTAINER
Active Ingredient: FLUCONAZOLE
Strength: 200MG/100ML (2MG/ML)
Dosage Form/Route: INJECTABLE;INJECTION
Application: A078764 | Product #001
Applicant: HIKMA FARMACEUTICA (PORTUGAL) SA
Approved: Jan 30, 2012 | RLD: No | RS: No | Type: DISCN